FAERS Safety Report 14368542 (Version 2)
Quarter: 2018Q1

REPORT INFORMATION
  Report Type: Report from Study
  Country: US (occurrence: US)
  Receive Date: 20180109
  Receipt Date: 20180216
  Transmission Date: 20180509
  Serious: Yes (Hospitalization)
  Sender: FDA-Public Use
  Company Number: US-ACTELION-A-US2017-158860

PATIENT
  Age: 52 Year
  Sex: Female
  Weight: 113.38 kg

DRUGS (4)
  1. OPSUMIT [Suspect]
     Active Substance: MACITENTAN
     Indication: PULMONARY ARTERIAL HYPERTENSION
     Dosage: 10 MG, QD
     Route: 048
     Dates: start: 20170606
  2. WARFARIN [Concomitant]
     Active Substance: WARFARIN
  3. TYVASO [Concomitant]
     Active Substance: TREPROSTINIL
  4. ADCIRCA [Concomitant]
     Active Substance: TADALAFIL

REACTIONS (12)
  - Influenza [Unknown]
  - Respiration abnormal [Unknown]
  - Right ventricular failure [Unknown]
  - Pneumonia [Unknown]
  - Abdominal distension [Unknown]
  - Blood potassium decreased [Unknown]
  - Dyspnoea [Recovering/Resolving]
  - Oedema [Unknown]
  - Chest pain [Recovering/Resolving]
  - Breath sounds abnormal [Unknown]
  - Peripheral swelling [Unknown]
  - Chronic obstructive pulmonary disease [Unknown]
